FAERS Safety Report 15432248 (Version 1)
Quarter: 2018Q4

REPORT INFORMATION
  Report Type: Spontaneous
  Country: ES (occurrence: ES)
  Receive Date: 20180926
  Receipt Date: 20180926
  Transmission Date: 20190204
  Serious: Yes (Other)
  Sender: FDA-Public Use
  Company Number: ES-GILEAD-2018-0364767

PATIENT
  Age: 22 Year
  Sex: Male

DRUGS (2)
  1. EFAVIRENZ/EMTRICITABINE/TENOFOVIR DISOPROXIL TEVA [Suspect]
     Active Substance: EFAVIRENZ\EMTRICITABINE\TENOFOVIR DISOPROXIL FUMARATE
     Indication: PROPHYLAXIS
     Dosage: 600 MG/ 200 MG/ 245 MG, QD
     Route: 048
     Dates: start: 201805
  2. ATRIPLA [Suspect]
     Active Substance: EFAVIRENZ\EMTRICITABINE\TENOFOVIR DISOPROXIL FUMARATE
     Indication: PROPHYLAXIS
     Dosage: 600 MG/ 200 MG/ 245 MG, QD
     Route: 048
     Dates: start: 201002, end: 201805

REACTIONS (1)
  - Infertility [Unknown]

NARRATIVE: CASE EVENT DATE: 20180905
